FAERS Safety Report 15206235 (Version 1)
Quarter: 2018Q3

REPORT INFORMATION
  Report Type: Spontaneous
  Country: GB (occurrence: GB)
  Receive Date: 20180727
  Receipt Date: 20180727
  Transmission Date: 20181010
  Serious: Yes (Hospitalization)
  Sender: FDA-Public Use
  Company Number: GB-TEVA-2018-GB-931567

PATIENT
  Age: 70 Year
  Sex: Female

DRUGS (8)
  1. CARBOCISTEINE [Concomitant]
     Active Substance: CARBOCYSTEINE
     Dosage: 2250 MILLIGRAM DAILY;
  2. CIPROFLOXACIN. [Suspect]
     Active Substance: CIPROFLOXACIN
     Dosage: 1000 MILLIGRAM DAILY;
  3. LANSOPRAZOLE. [Concomitant]
     Active Substance: LANSOPRAZOLE
     Dosage: 15 MILLIGRAM DAILY;
  4. BRALTUS [Concomitant]
     Dosage: 10 MICROGRAM DAILY; WITH ZONDA INHALER
     Route: 055
  5. SERETIDE [Concomitant]
     Active Substance: FLUTICASONE PROPIONATE\SALMETEROL XINAFOATE
     Dosage: 4 DOSAGE FORMS DAILY; PUFFS
     Route: 055
  6. AIROMIR [Concomitant]
     Active Substance: ALBUTEROL SULFATE
     Dosage: ONE OR TWO PUFFS TO BE INHALED FOUR TIMES A DAY WHEN REQUIRED.
     Route: 055
  7. ADCAL?D3 [Concomitant]
     Active Substance: CALCIUM CARBONATE\CHOLECALCIFEROL
     Dosage: 2 DOSAGE FORMS DAILY;
  8. MONTELUKAST [Concomitant]
     Active Substance: MONTELUKAST SODIUM
     Dosage: 10 MILLIGRAM DAILY; AT NIGHT

REACTIONS (1)
  - Atrial fibrillation [Recovered/Resolved]
